FAERS Safety Report 6878789-1 (Version None)
Quarter: 2010Q3

REPORT INFORMATION
  Report Type: 
  Country: None (occurrence: None)
  Receive Date: 20100728
  Receipt Date: 20100714
  Transmission Date: 20110219
  Serious: Yes (Hospitalization, Other)
  Sender: FDA-Public Use
  Company Number: DE-BAYER-200933689GPV

PATIENT
  Sex: Female
  Weight: 72 kg

DRUGS (1)
  1. MIRENA [Suspect]
     Indication: CONTRACEPTION
     Route: 015
     Dates: start: 20051201

REACTIONS (6)
  - DEVICE EXPULSION [None]
  - IMMINENT ABORTION [None]
  - PLACENTA ACCRETA [None]
  - PREGNANCY WITH CONTRACEPTIVE DEVICE [None]
  - RETROPLACENTAL HAEMATOMA [None]
  - VAGINAL HAEMORRHAGE [None]
